FAERS Safety Report 13508820 (Version 3)
Quarter: 2017Q4

REPORT INFORMATION
  Report Type: Report from Study
  Country: CO (occurrence: CO)
  Receive Date: 20170503
  Receipt Date: 20171011
  Transmission Date: 20180320
  Serious: Yes (Hospitalization)
  Sender: FDA-Public Use
  Company Number: CO-INCYTE CORPORATION-2017IN003159

PATIENT

DRUGS (3)
  1. JAKAVI [Suspect]
     Active Substance: RUXOLITINIB
     Indication: POLYCYTHAEMIA VERA
     Dosage: 15 MG, BID
     Route: 048
     Dates: start: 20161207, end: 201705
  2. CALCIUM [Concomitant]
     Active Substance: CALCIUM
     Indication: PRODUCT USED FOR UNKNOWN INDICATION
     Route: 065
  3. CALCIUM [Concomitant]
     Active Substance: CALCIUM
     Route: 065

REACTIONS (15)
  - Abdominal pain [Unknown]
  - Platelet count increased [Unknown]
  - Erythema [Unknown]
  - Malaise [Unknown]
  - Contusion [Unknown]
  - Dizziness [Unknown]
  - Pyrexia [Unknown]
  - Splenomegaly [Unknown]
  - Splenitis [Unknown]
  - Haemoglobin increased [Unknown]
  - Pruritus [Unknown]
  - Uterine disorder [Unknown]
  - Headache [Unknown]
  - Hypersensitivity [Unknown]
  - Tinnitus [Unknown]

NARRATIVE: CASE EVENT DATE: 201703
